FAERS Safety Report 8006691-0 (Version None)
Quarter: 2011Q4

REPORT INFORMATION
  Report Type: 
  Country: None (occurrence: None)
  Receive Date: 20111227
  Receipt Date: 20111216
  Transmission Date: 20120403
  Serious: Yes (Hospitalization, Disabling, Other)
  Sender: FDA-Public Use
  Company Number: US-CELGENEUS-163-21880-11122310

PATIENT
  Sex: Male
  Weight: 86.26 kg

DRUGS (16)
  1. AMBIEN [Concomitant]
     Route: 065
  2. CALCIUM [Concomitant]
     Route: 065
  3. MULTI-VITAMINS [Concomitant]
     Route: 065
  4. NORTRIPTYLINE HCL [Concomitant]
     Route: 065
  5. OMEPRAZOLE [Concomitant]
     Route: 065
  6. VITAMIN D [Concomitant]
     Route: 065
  7. METHYLPREDNISOLONE ACETATE [Concomitant]
     Route: 065
  8. ATIVAN [Concomitant]
     Route: 065
  9. TOPROL-XL [Concomitant]
     Route: 065
  10. DILAUDID [Concomitant]
     Route: 065
  11. DIOVAN [Concomitant]
     Route: 065
  12. REVLIMID [Suspect]
     Indication: MULTIPLE MYELOMA
     Dosage: 15 MILLIGRAM
     Route: 048
     Dates: start: 20050601
  13. FIORICET [Concomitant]
     Route: 065
  14. OXYCONTIN [Concomitant]
     Route: 065
  15. ASPIRIN [Concomitant]
     Route: 065
  16. NEURONTIN [Concomitant]
     Route: 065

REACTIONS (3)
  - ANKLE FRACTURE [None]
  - BALANCE DISORDER [None]
  - FALL [None]
